FAERS Safety Report 8837658 (Version 1)
Quarter: 2012Q4

REPORT INFORMATION
  Report Type: 
  Country: ID (occurrence: ID)
  Receive Date: 20121012
  Receipt Date: 20121012
  Transmission Date: 20130627
  Serious: Yes (Death, Other)
  Sender: FDA-Public Use
  Company Number: PHHY2012ID090117

PATIENT
  Sex: Male

DRUGS (1)
  1. GLIVEC [Suspect]
     Indication: GASTROINTESTINAL STROMAL TUMOUR
     Dosage: 400 mg, per day
     Route: 048

REACTIONS (2)
  - Death [Fatal]
  - Metastasis [Unknown]
